FAERS Safety Report 7682022-0 (Version None)
Quarter: 2011Q3

REPORT INFORMATION
  Report Type: 
  Country: None (occurrence: None)
  Receive Date: 20110815
  Receipt Date: 20110802
  Transmission Date: 20111222
  Serious: Yes (Hospitalization, Other)
  Sender: FDA-Public Use
  Company Number: US-ELI_LILLY_AND_COMPANY-US201108001960

PATIENT
  Sex: Male

DRUGS (17)
  1. AZITHROMYCIN [Concomitant]
     Dosage: 1 DF, 3/W
  2. MUCINEX [Concomitant]
     Dosage: UNK, QID
  3. ALBUTEROL SULFATE [Concomitant]
     Dosage: 3.5 MG, QID
  4. POTASSIUM CHLORIDE [Concomitant]
     Dosage: 20 MEQ, BID
  5. MEGESTROL ACETATE [Concomitant]
     Indication: INCREASED APPETITE
     Dosage: 4 DF, QD
  6. CARTIA XT [Concomitant]
     Indication: ATRIAL FIBRILLATION
     Dosage: 1 DF, QD
  7. DOXYCYCLINE HYCLATE [Concomitant]
     Dosage: 100 MG, BID
  8. FORTEO [Suspect]
     Indication: OSTEOPOROSIS
     Dosage: 20 UG, QD
     Dates: start: 20110701
  9. FUROSEMIDE [Concomitant]
     Dosage: 80 MG, OTHER
  10. TRAMADOL HCL [Concomitant]
     Dosage: 50 MG, PRN
  11. PRADAXA [Concomitant]
     Indication: CEREBROVASCULAR ACCIDENT
     Dosage: 150 MG, BID
  12. LESCOL XL [Concomitant]
     Indication: BLOOD CHOLESTEROL
  13. PREDNISONE [Concomitant]
     Dosage: 4 MG, UNK
  14. IPRATROPIUM BROMIDE [Concomitant]
     Dosage: 0.5 MG, QID
  15. POTASSIUM CHLORIDE [Concomitant]
     Dosage: 2 DF, QD
     Route: 048
  16. ADVAIR DISKUS 100/50 [Concomitant]
     Dosage: 1 DF, BID
  17. BUTRANS [Concomitant]
     Dosage: 10 MG, QD

REACTIONS (4)
  - TREMOR [None]
  - GASTROINTESTINAL HAEMORRHAGE [None]
  - DYSPNOEA [None]
  - RECTAL HAEMORRHAGE [None]
